FAERS Safety Report 7017398-0 (Version None)
Quarter: 2010Q3

REPORT INFORMATION
  Report Type: 
  Country: None (occurrence: None)
  Receive Date: 20100928
  Receipt Date: 20100923
  Transmission Date: 20110219
  Serious: Yes (Hospitalization, Other)
  Sender: FDA-Public Use
  Company Number: IE-BRISTOL-MYERS SQUIBB COMPANY-15014442

PATIENT
  Age: 6 Month
  Sex: Female

DRUGS (4)
  1. ATAZANAVIR [Suspect]
     Route: 064
     Dates: start: 20090410
  2. NORVIR [Suspect]
     Route: 064
     Dates: start: 20090410
  3. TRUVADA [Suspect]
     Dosage: 1 DF = 1TABS
     Route: 064
     Dates: start: 20090410
  4. METHADONE HCL [Suspect]

REACTIONS (3)
  - DRUG WITHDRAWAL SYNDROME NEONATAL [None]
  - HEPATITIS C [None]
  - HIV INFECTION [None]
